FAERS Safety Report 9363843 (Version 2)
Quarter: 2013Q4

REPORT INFORMATION
  Report Type: Spontaneous
  Country: GB (occurrence: None)
  Receive Date: 20130618
  Receipt Date: 20131211
  Transmission Date: 20140711
  Serious: Yes (Other)
  Sender: FDA-Public Use
  Company Number: FK201302059

PATIENT
  Age: 74 Year
  Sex: Female
  Weight: 64.7 kg

DRUGS (6)
  1. CARBOPLATIN [Suspect]
     Indication: OVARIAN CANCER
     Dosage: INTRAVENOUS (NOT OTHERWISE SPECIFIED)
     Route: 042
     Dates: start: 20120704, end: 20121031
  2. ABRAXANE [Suspect]
     Indication: OVARIAN CANCER
     Dosage: INTRAVENOUS (NOT OTHERWISE SPECIFIED)
     Route: 042
     Dates: start: 20120913, end: 20121002
  3. GLUCOSAMINE (GLUCOSAMINE) [Concomitant]
  4. APREPITANT (APREPITANT) [Concomitant]
  5. DEXAMETHASONE (DEXAMETHASONE) [Concomitant]
  6. ONDANSETRON (ONDANSETRON) [Concomitant]

REACTIONS (5)
  - Skin burning sensation [None]
  - Skin odour abnormal [None]
  - Nausea [None]
  - Increased tendency to bruise [None]
  - Documented hypersensitivity to administered drug [None]
